FAERS Safety Report 20001188 (Version 1)
Quarter: 2021Q4

REPORT INFORMATION
  Report Type: Report from Study
  Country: IN (occurrence: IN)
  Receive Date: 20211027
  Receipt Date: 20211027
  Transmission Date: 20220303
  Serious: Yes (Other)
  Sender: FDA-Public Use
  Company Number: IN-BRISTOL-MYERS SQUIBB COMPANY-BMS-2021-110925

PATIENT
  Age: 33 Year
  Sex: Female
  Weight: 54.5 kg

DRUGS (2)
  1. NIVOLUMAB [Suspect]
     Active Substance: NIVOLUMAB
     Indication: Hodgkin^s disease
     Dosage: 164 MILLIGRAM, Q2WK
     Route: 042
     Dates: start: 20210728
  2. NIVOLUMAB [Suspect]
     Active Substance: NIVOLUMAB
     Dosage: 160 MILLIGRAM
     Route: 065

REACTIONS (3)
  - Paraesthesia [Unknown]
  - Hypoaesthesia [Unknown]
  - Prescribed overdose [Unknown]
